FAERS Safety Report 15779139 (Version 1)
Quarter: 2019Q1

REPORT INFORMATION
  Report Type: Other
  Country: CL (occurrence: CL)
  Receive Date: 20190101
  Receipt Date: 20190101
  Transmission Date: 20190417
  Serious: Yes (Other)
  Sender: FDA-Public Use
  Company Number: CL-ASCEND THERAPEUTICS-2060734

PATIENT
  Age: 51 Year
  Sex: Female

DRUGS (2)
  1. ESTROGEL [Suspect]
     Active Substance: ESTRADIOL
     Indication: HORMONE REPLACEMENT THERAPY
     Route: 065
  2. DYDROGESTERONE (DYDROGESTERONE) [Suspect]
     Active Substance: DYDROGESTERONE

REACTIONS (1)
  - Porphyria non-acute [Recovered/Resolved]
